FAERS Safety Report 19100705 (Version 1)
Quarter: 2021Q2

REPORT INFORMATION
  Report Type: Spontaneous
  Country: DE (occurrence: DE)
  Receive Date: 20210407
  Receipt Date: 20210407
  Transmission Date: 20210717
  Serious: Yes (Other)
  Sender: FDA-Public Use
  Company Number: DE-DRREDDYS-GER/GER/21/0133550

PATIENT
  Age: 62 Year
  Sex: Female
  Weight: 161 kg

DRUGS (5)
  1. PANTOPRAZOLE [Suspect]
     Active Substance: PANTOPRAZOLE
     Indication: NAUSEA
  2. CANDESARTAN. [Concomitant]
     Active Substance: CANDESARTAN
     Indication: PRODUCT USED FOR UNKNOWN INDICATION
     Dosage: 0.5 ?0?1
     Dates: start: 20201209
  3. CANDESARTAN. [Concomitant]
     Active Substance: CANDESARTAN
     Dosage: 1?0?0
     Route: 048
     Dates: start: 2017
  4. PANTOPRAZOLE [Suspect]
     Active Substance: PANTOPRAZOLE
     Indication: ABDOMINAL PAIN UPPER
     Route: 048
     Dates: start: 20201230, end: 20210101
  5. BISOPROLOL [Concomitant]
     Active Substance: BISOPROLOL
     Indication: PRODUCT USED FOR UNKNOWN INDICATION
     Dosage: 1 X AM ABEND, DURCHGEHENDE EINNAHME
     Route: 048
     Dates: start: 2011

REACTIONS (7)
  - Asthenia [Recovered/Resolved]
  - Fatigue [Recovered/Resolved]
  - Tremor [Recovered/Resolved]
  - Nausea [Recovering/Resolving]
  - Blood pressure increased [Recovered/Resolved]
  - Cough [Recovered/Resolved]
  - Hyperhidrosis [Recovered/Resolved]

NARRATIVE: CASE EVENT DATE: 20201231
